FAERS Safety Report 9269969 (Version 1)
Quarter: 2013Q2

REPORT INFORMATION
  Report Type: Spontaneous
  Country: US (occurrence: US)
  Receive Date: 20130503
  Receipt Date: 20130503
  Transmission Date: 20140414
  Serious: Yes (Other)
  Sender: FDA-Public Use
  Company Number: US-GILEAD-2013-0072408

PATIENT
  Sex: Female

DRUGS (2)
  1. LETAIRIS [Suspect]
     Indication: PULMONARY HYPERTENSION
     Dates: start: 20121207
  2. LETAIRIS [Suspect]
     Indication: SCLERODERMA
     Dosage: UNK
     Dates: start: 20130418

REACTIONS (2)
  - Lung infection [Unknown]
  - Dyspnoea [Unknown]
